FAERS Safety Report 9907101 (Version 1)
Quarter: 2014Q1

REPORT INFORMATION
  Report Type: Spontaneous
  Country: US (occurrence: US)
  Receive Date: 20140218
  Receipt Date: 20140218
  Transmission Date: 20141002
  Serious: Yes (Other)
  Sender: FDA-Public Use
  Company Number: US-PFIZER INC-2014044759

PATIENT
  Age: 69 Year
  Sex: Female
  Weight: 108.84 kg

DRUGS (7)
  1. CELEBREX [Suspect]
     Indication: RHEUMATOID ARTHRITIS
     Dosage: 200 MG, 2X/DAY
     Route: 048
     Dates: start: 2013, end: 201312
  2. HUMIRA [Suspect]
     Indication: RHEUMATOID ARTHRITIS
     Dosage: 40 MG, WEEKLY
  3. AMLODIPINE [Concomitant]
     Indication: HYPERTENSION
     Dosage: 10 MG, 1X/DAY
  4. SIMVASTATIN [Concomitant]
     Indication: BLOOD CHOLESTEROL INCREASED
     Dosage: 20 MG, 1X/DAY
  5. BIOTIN [Concomitant]
     Dosage: 10000 UG, DAILY
  6. CENTRUM SILVER [Concomitant]
     Indication: VITAMIN SUPPLEMENTATION
     Dosage: 1 DF, DAILY
  7. HYDROCODONE /ACETAMINOPHEN [Concomitant]
     Indication: PAIN
     Dosage: 7.5/650 MG, AS NEEDED

REACTIONS (2)
  - Renal impairment [Unknown]
  - Nephropathy [Unknown]
